FAERS Safety Report 11335584 (Version 1)
Quarter: 2015Q3

REPORT INFORMATION
  Report Type: Spontaneous
  Country: US (occurrence: None)
  Receive Date: 20150731
  Receipt Date: 20150731
  Transmission Date: 20151125
  Serious: Yes (Hospitalization)
  Sender: FDA-Public Use
  Company Number: None

PATIENT
  Age: 85 Year
  Sex: Male
  Weight: 53.52 kg

DRUGS (14)
  1. ACYCLOVIR. [Concomitant]
     Active Substance: ACYCLOVIR
  2. ALLOPURINOL. [Concomitant]
     Active Substance: ALLOPURINOL
  3. BUDESONIDE-FORMOTEROL [Concomitant]
     Active Substance: BUDESONIDE\FORMOTEROL
  4. FISH OIL [Concomitant]
     Active Substance: FISH OIL
  5. SENNA WITH DOCUSATE [Concomitant]
  6. ALBUTEROL. [Concomitant]
     Active Substance: ALBUTEROL
  7. CHOLECALCIFEROL-VITAMIN D3 [Concomitant]
  8. ENOXAPARIN SODIUM. [Concomitant]
     Active Substance: ENOXAPARIN SODIUM
  9. RUXOLITINIB 5 MG TABS [Suspect]
     Active Substance: RUXOLITINIB
     Indication: CHRONIC MYELOID LEUKAEMIA
     Route: 048
     Dates: start: 20150428, end: 20150501
  10. ASCORBIC ACID. [Concomitant]
     Active Substance: ASCORBIC ACID
  11. FOLIC ACID. [Concomitant]
     Active Substance: FOLIC ACID
  12. OMEPRAZOLE. [Concomitant]
     Active Substance: OMEPRAZOLE
  13. OXYCODONE [Concomitant]
     Active Substance: OXYCODONE
  14. WARFARIN [Concomitant]
     Active Substance: WARFARIN

REACTIONS (4)
  - Anaemia [None]
  - Contusion [None]
  - Haemorrhage [None]
  - Procedural haemorrhage [None]

NARRATIVE: CASE EVENT DATE: 20150501
